FAERS Safety Report 5214132-1 (Version None)
Quarter: 2007Q1

REPORT INFORMATION
  Report Type: 
  Country: None (occurrence: None)
  Receive Date: 20070116
  Receipt Date: 20070103
  Transmission Date: 20070707
  Serious: Yes (Other)
  Sender: FDA-Public Use
  Company Number: GBWYE028604JAN07

PATIENT
  Sex: Female

DRUGS (6)
  1. IBUPROFEN [Suspect]
     Dosage: ORAL
     Route: 048
  2. PAROXETINE HCL [Suspect]
     Indication: DEPRESSION
     Dosage: 'SEE IMAGE
     Dates: end: 19990301
  3. PAROXETINE HCL [Suspect]
     Indication: DEPRESSION
     Dosage: 'SEE IMAGE
     Dates: start: 19990301, end: 20010101
  4. PAROXETINE HCL [Suspect]
     Indication: DEPRESSION
     Dosage: 'SEE IMAGE
     Dates: start: 19970902
  5. .. [Concomitant]
  6. .. [Concomitant]

REACTIONS (9)
  - ANXIETY [None]
  - CONDITION AGGRAVATED [None]
  - DEPRESSION [None]
  - DRUG WITHDRAWAL SYNDROME [None]
  - FEELING ABNORMAL [None]
  - HYPERHIDROSIS [None]
  - OVERDOSE [None]
  - PRURITUS [None]
  - SUICIDAL IDEATION [None]
